FAERS Safety Report 4768463-X (Version None)
Quarter: 2005Q3

REPORT INFORMATION
  Report Type: 
  Country: None (occurrence: None)
  Receive Date: 20050914
  Receipt Date: 20050909
  Transmission Date: 20060218
  Serious: Yes (Other)
  Sender: FDA-Public Use
  Company Number: CA-MERCK-0509USA01116

PATIENT
  Age: 58 Year
  Sex: Female

DRUGS (7)
  1. SINGULAIR [Suspect]
     Route: 048
  2. UNIPHYL [Concomitant]
     Route: 065
  3. DIDROCAL [Concomitant]
     Route: 065
  4. FLOVENT [Concomitant]
     Route: 065
  5. PREMARIN [Concomitant]
     Route: 065
  6. ALBUTEROL [Concomitant]
     Route: 065
  7. SEREVENT [Concomitant]
     Route: 065

REACTIONS (3)
  - ANGIONEUROTIC OEDEMA [None]
  - DYSPNOEA [None]
  - VOMITING [None]
